FAERS Safety Report 23783108 (Version 2)
Quarter: 2024Q2

REPORT INFORMATION
  Report Type: Report from Study
  Country: US (occurrence: US)
  Receive Date: 20240425
  Receipt Date: 20240524
  Transmission Date: 20240716
  Serious: No
  Sender: FDA-Public Use
  Company Number: US-ACADIA PHARMACEUTICALS INC.-ACA-2024-PIM-002084

PATIENT
  Age: 68 Year
  Sex: Male

DRUGS (8)
  1. NUPLAZID [Suspect]
     Active Substance: PIMAVANSERIN TARTRATE
     Dosage: UNK UNK, QD
     Dates: start: 202003
  2. NUPLAZID [Suspect]
     Active Substance: PIMAVANSERIN TARTRATE
     Dosage: 34 MILLIGRAM, QD
     Route: 065
     Dates: start: 20200407, end: 20240326
  3. RYTARY [Concomitant]
     Active Substance: CARBIDOPA\LEVODOPA
  4. AMANTADINE [Concomitant]
     Active Substance: AMANTADINE
  5. GABAPENTIN [Concomitant]
     Active Substance: GABAPENTIN
  6. KLONOPIN [Concomitant]
     Active Substance: CLONAZEPAM
  7. ELIQUIS [Concomitant]
     Active Substance: APIXABAN
  8. SEROQUEL [Concomitant]
     Active Substance: QUETIAPINE FUMARATE

REACTIONS (2)
  - Delusion [Recovered/Resolved]
  - Hallucination [Recovered/Resolved]

NARRATIVE: CASE EVENT DATE: 20240326
